FAERS Safety Report 10541219 (Version 1)
Quarter: 2014Q4

REPORT INFORMATION
  Report Type: Spontaneous
  Country: US (occurrence: None)
  Receive Date: 20141010
  Receipt Date: 20141010
  Transmission Date: 20150529
  Serious: No
  Sender: FDA-Public Use
  Company Number: 163-POMAL-14075420

PATIENT
  Age: 65 Year
  Sex: Male
  Weight: 83.9 kg

DRUGS (7)
  1. TRADJENTA (LINAGLIPTIN) [Concomitant]
  2. COUMADIN [Concomitant]
     Active Substance: WARFARIN SODIUM
  3. LIDOCAINE. [Concomitant]
     Active Substance: LIDOCAINE
  4. METOPROLOL [Concomitant]
     Active Substance: METOPROLOL
  5. POMALYST [Suspect]
     Active Substance: POMALIDOMIDE
     Indication: PLASMA CELL MYELOMA
     Route: 048
     Dates: start: 201303
  6. GABAPENTIN. [Concomitant]
     Active Substance: GABAPENTIN
  7. METFORMIN [Concomitant]
     Active Substance: METFORMIN HYDROCHLORIDE

REACTIONS (1)
  - Furuncle [None]

NARRATIVE: CASE EVENT DATE: 201406
